FAERS Safety Report 8492046-1 (Version None)
Quarter: 2012Q3

REPORT INFORMATION
  Report Type: 
  Country: None (occurrence: None)
  Receive Date: 20120706
  Receipt Date: 20120628
  Transmission Date: 20120928
  Serious: Yes (Other)
  Sender: FDA-Public Use
  Company Number: US-INCYTE CORPORATION-2012IN000334

PATIENT
  Age: 71 Year
  Sex: Female

DRUGS (2)
  1. JAKAFI [Suspect]
     Dosage: NOT SPECIFIED
     Route: 048
  2. HYDROXYUREA [Concomitant]

REACTIONS (3)
  - ALVEOLITIS ALLERGIC [None]
  - ANAEMIA [None]
  - EXTRAMEDULLARY HAEMOPOIESIS [None]
